FAERS Safety Report 5312671-6 (Version None)
Quarter: 2007Q2

REPORT INFORMATION
  Report Type: 
  Country: None (occurrence: None)
  Receive Date: 20070430
  Receipt Date: 20070215
  Transmission Date: 20071010
  Serious: No
  Sender: FDA-Public Use
  Company Number: 2007UW03049

PATIENT
  Age: 64 Year
  Sex: Female
  Weight: 77.1 kg

DRUGS (6)
  1. NEXIUM [Suspect]
     Indication: GASTROOESOPHAGEAL REFLUX DISEASE
     Route: 048
  2. SYNTHROID [Concomitant]
  3. ACTOS [Concomitant]
  4. ALTACE [Concomitant]
  5. VYTORIN [Concomitant]
  6. PAXIL [Concomitant]

REACTIONS (3)
  - CHEST DISCOMFORT [None]
  - DYSPHAGIA [None]
  - NAUSEA [None]
